FAERS Safety Report 14665150 (Version 1)
Quarter: 2018Q1

REPORT INFORMATION
  Report Type: Spontaneous
  Country: US (occurrence: US)
  Receive Date: 20180320
  Receipt Date: 20180320
  Transmission Date: 20180509
  Serious: Yes (Disabling)
  Sender: FDA-Public Use
  Company Number: None

PATIENT
  Age: 67 Year
  Sex: Female
  Weight: 58.5 kg

DRUGS (6)
  1. APPLE PECTIN [Concomitant]
  2. VITAMIN D3 [Concomitant]
     Active Substance: CHOLECALCIFEROL
  3. VITAMIN C [Concomitant]
     Active Substance: ASCORBIC ACID
  4. ERYTHROMYCIN OPTHALMIC OINTMENT, USP 0.5% [Suspect]
     Active Substance: ERYTHROMYCIN
     Indication: PROPHYLAXIS
     Dosage: QUANTITY:0.25 INCH;?
     Route: 047
     Dates: start: 20180115, end: 20180202
  5. LINZESS [Concomitant]
     Active Substance: LINACLOTIDE
  6. ERYTHROMYCIN OPTHALMIC OINTMENT, USP 0.5% [Suspect]
     Active Substance: ERYTHROMYCIN
     Indication: HERPES ZOSTER
     Dosage: QUANTITY:0.25 INCH;?
     Route: 047
     Dates: start: 20180115, end: 20180202

REACTIONS (3)
  - Eye pain [None]
  - Product contamination physical [None]
  - Foreign body in eye [None]

NARRATIVE: CASE EVENT DATE: 20180115
